FAERS Safety Report 7095164-8 (Version None)
Quarter: 2010Q4

REPORT INFORMATION
  Report Type: 
  Country: None (occurrence: None)
  Receive Date: 20101109
  Receipt Date: 20101109
  Transmission Date: 20110411
  Serious: Yes (Death)
  Sender: FDA-Public Use
  Company Number: None

PATIENT
  Sex: Male
  Weight: 10 kg

DRUGS (16)
  1. NIFURTIMOX (LAMPIT) [Suspect]
     Indication: NEUROBLASTOMA RECURRENT
     Dosage: 30MG/KG OR 120MG TID PO
     Route: 048
     Dates: start: 20101022, end: 20101106
  2. ALBUMIN (HUMAN) [Concomitant]
  3. CEFEPIME [Concomitant]
  4. CYCLOPHOSPHAMIDE [Concomitant]
  5. NEUPOGEN [Concomitant]
  6. FLUCONAZOLE [Concomitant]
  7. FUROSEMIDE [Concomitant]
  8. MORPHINE [Concomitant]
  9. RASBURICASE [Concomitant]
  10. TOPOTECAN [Concomitant]
  11. ACETAMINOPHEN [Concomitant]
  12. DIPHENHYDRAMINE HCL [Concomitant]
  13. MILES MAGIC LIQUID (NYSTATIN, HYDROCORTISONE, ERYTHROMYCIN) [Concomitant]
  14. MUPIROCIN [Concomitant]
  15. ONDANSETRON [Concomitant]
  16. VORICONAZOLE [Concomitant]

REACTIONS (4)
  - DYSPHAGIA [None]
  - MALIGNANT NEOPLASM PROGRESSION [None]
  - NEUROBLASTOMA [None]
  - RESPIRATORY ARREST [None]
